FAERS Safety Report 10587731 (Version 3)
Quarter: 2014Q4

REPORT INFORMATION
  Report Type: Spontaneous
  Country: US (occurrence: US)
  Receive Date: 20141117
  Receipt Date: 20141211
  Transmission Date: 20150529
  Serious: Yes (Other)
  Sender: FDA-Public Use
  Company Number: US-PFIZER INC-2014314545

PATIENT
  Age: 58 Year
  Sex: Male
  Weight: 98 kg

DRUGS (15)
  1. IBUPROFEN. [Concomitant]
     Active Substance: IBUPROFEN
     Dosage: 800 MG, AS NEEDED
  2. LYRICA [Suspect]
     Active Substance: PREGABALIN
     Dosage: 75 MG, 3X/DAY
     Route: 048
  3. XANAX [Suspect]
     Active Substance: ALPRAZOLAM
     Dosage: 0.25 MG, AS NEEDED
  4. OMEPRAZOLE. [Concomitant]
     Active Substance: OMEPRAZOLE
     Dosage: 20 MG, 1X/DAY
  5. LISINOPRIL - HYDROCHLOROTHIAZIDE [Concomitant]
     Dosage: 1 DF [LISINOPRIL 20 MG] / [HYDROCHLOROTHIAZIDE 25 MG], 1X/DAY
     Route: 048
  6. PERCOCET [Concomitant]
     Active Substance: ACETAMINOPHEN\OXYCODONE HYDROCHLORIDE
     Dosage: STR [OXYCODONE HYDROCHLORIDE 7.5MG]/[PARACETAMOL 325 MG], UNK
  7. PRANDIN [Concomitant]
     Active Substance: REPAGLINIDE
     Indication: BLOOD GLUCOSE
     Dosage: 1 MG, 3X/DAY BEFORE MEALS
     Route: 048
  8. AMBIEN [Concomitant]
     Active Substance: ZOLPIDEM TARTRATE
     Dosage: 5 MG, UNK
  9. HYDROCODONE ACETAMINOPHEN [Concomitant]
     Active Substance: ACETAMINOPHEN\HYDROCODONE BITARTRATE
     Dosage: 1 DF [ HYDROCODONE 5MG]/ [ACETAMINOPHEN 325MG], AS NEEDED AT BEDTIME
  10. LIPITOR [Suspect]
     Active Substance: ATORVASTATIN CALCIUM
     Dosage: 20 MG, 1X/DAY
  11. METFORMIN HCL [Concomitant]
     Active Substance: METFORMIN HYDROCHLORIDE
     Indication: BLOOD GLUCOSE
     Dosage: 2000 MG (2 OF 1000 MG TABLETS), 1X/DAY
  12. PERCOCET [Concomitant]
     Active Substance: ACETAMINOPHEN\OXYCODONE HYDROCHLORIDE
     Dosage: 2DF [OXYCODONE HYDROCHLORIDE 5MG]/[PARACETAMOL 325 MG], 2X/DAY EVERY 12 HOURS AS NEEDED
  13. GLIPIZIDE XL [Concomitant]
     Active Substance: GLIPIZIDE
     Indication: BLOOD GLUCOSE
     Dosage: 10 MG, 2X/DAY
     Route: 048
  14. ACARBOSE. [Concomitant]
     Active Substance: ACARBOSE
     Indication: BLOOD GLUCOSE
     Dosage: 25 MG, 3X/DAY BEFORE MEALS
     Route: 048
  15. METANX [Concomitant]
     Active Substance: LEVOMEFOLATE CALCIUM\METHYLCOBALAMIN\PYRIDOXAL PHOSPHATE ANHYDROUS
     Indication: PERIPHERAL SENSORY NEUROPATHY
     Dosage: 1 DF [3-90.314-2-35 MG], 2X/DAY
     Route: 048

REACTIONS (4)
  - Arthralgia [Unknown]
  - Diabetes mellitus inadequate control [Unknown]
  - Back disorder [Unknown]
  - Arthropathy [Unknown]
